FAERS Safety Report 8596302 (Version 3)
Quarter: 2014Q1

REPORT INFORMATION
  Report Type: Report from Study
  Country: MX (occurrence: MX)
  Receive Date: 20120605
  Receipt Date: 20140219
  Transmission Date: 20141002
  Serious: Yes (Hospitalization, Other)
  Sender: FDA-Public Use
  Company Number: PHHY2012MX046987

PATIENT
  Age: 71 Year
  Sex: Female

DRUGS (6)
  1. ACLASTA [Suspect]
     Indication: OSTEOPOROSIS
     Dosage: 5 MG/100 ML, ANNUAL
     Route: 042
     Dates: start: 20090317, end: 201004
  2. ACLASTA [Suspect]
     Dosage: 5 MG/100 ML, ANNUAL
     Route: 042
  3. EVISTA [Concomitant]
     Dosage: 1 DF, DAILY
     Dates: start: 2005
  4. DILENA [Concomitant]
     Dosage: 1 DF, UNK
  5. FOSAMAX [Concomitant]
     Indication: OSTEOPOROSIS
     Dosage: 1 DF, WEEKLY
     Dates: start: 2007
  6. TEGRETOL [Concomitant]
     Dosage: 2 DF, DAILY
     Dates: start: 2007

REACTIONS (3)
  - Spinal disorder [Not Recovered/Not Resolved]
  - Bone density abnormal [Unknown]
  - Drug ineffective [Unknown]
